FAERS Safety Report 19743513 (Version 4)
Quarter: 2021Q3

REPORT INFORMATION
  Report Type: Other
  Country: GB (occurrence: GB)
  Receive Date: 20210825
  Receipt Date: 20210922
  Transmission Date: 20211014
  Serious: Yes (Death, Hospitalization, Other)
  Sender: FDA-Public Use
  Company Number: GB-STRIDES ARCOLAB LIMITED-2021SP026623

PATIENT
  Age: 71 Year
  Sex: Female
  Weight: 54 kg

DRUGS (40)
  1. METOCLOPRAMIDE. [Concomitant]
     Active Substance: METOCLOPRAMIDE
     Indication: VOMITING
     Dosage: UNK, PER DAY
     Route: 065
  2. CARBOPLATIN. [Suspect]
     Active Substance: CARBOPLATIN
     Indication: NON-SMALL CELL LUNG CANCER
     Dosage: 450 MILLIGRAM, UNK (STARTED ON 29 JUL 2020) PER DAY
     Route: 065
  3. ETOPOSIDE. [Suspect]
     Active Substance: ETOPOSIDE
     Indication: NON-SMALL CELL LUNG CANCER
     Dosage: 600 MILLIGRAM PER DAY
     Route: 048
  4. FORMOTEROL [Suspect]
     Active Substance: FORMOTEROL
     Indication: HYPERTENSION
     Dosage: UNK, BID (STARTED ON 01 MAR 2020)
     Route: 065
  5. MORPHINE SULPHATE [Suspect]
     Active Substance: MORPHINE SULFATE
     Indication: PAIN
     Dosage: UNK (STARTED ON 25 AUG 2020)
     Route: 065
  6. MORPHINE SULPHATE [Suspect]
     Active Substance: MORPHINE SULFATE
     Dosage: 1, BID (STARTED ON 31 JUL 2020)
     Route: 065
  7. SALBUTAMOL [Suspect]
     Active Substance: ALBUTEROL
     Indication: PROPHYLAXIS
     Dosage: UNK
     Route: 065
  8. SOLPADOL [CODEINE PHOSPHATE;PARACETAMOL] [Suspect]
     Active Substance: ACETAMINOPHEN\CODEINE PHOSPHATE
     Indication: PAIN
  9. AMLODIPINE [Suspect]
     Active Substance: AMLODIPINE BESYLATE
     Indication: HYPERTENSION
     Dosage: UNK, PER DAY
     Route: 065
  10. DEXAMETHASONE. [Suspect]
     Active Substance: DEXAMETHASONE
     Indication: DYSPHAGIA
     Dosage: 1 UNK, PER DAY (STARTED ON 26 AUG 2020)
     Route: 065
  11. ATEZOLIZUMAB. [Suspect]
     Active Substance: ATEZOLIZUMAB
     Indication: NON-SMALL CELL LUNG CANCER
     Dosage: 1200 MILLIGRAM EVERY 3 WEEKS MOST RECENT DOSE OF ATEZOLIZUMAB PRIOR TO ADVERSE EVENT ONSET ON 19/AUG
     Route: 041
  12. CLOPIDOGREL [Suspect]
     Active Substance: CLOPIDOGREL BISULFATE
     Indication: HYPERTENSION
     Dosage: 1 PER DAY
     Route: 065
  13. CYCLIZINE [Suspect]
     Active Substance: CYCLIZINE
     Indication: VOMITING
     Dosage: 4 (UNIT UNKNOWN) PER DAY
     Route: 065
  14. CYCLIZINE [Suspect]
     Active Substance: CYCLIZINE
     Indication: NEUTROPENIC SEPSIS
     Dosage: 1, 0.3 DAY (1 IN 0.25 DAY)
     Route: 065
  15. LINEZOLID. [Suspect]
     Active Substance: LINEZOLID
     Indication: NEUTROPENIC SEPSIS
     Dosage: UNK (STARTED ON 30 AUG 2020)
     Route: 065
  16. VENLAFAXINE [Suspect]
     Active Substance: VENLAFAXINE HYDROCHLORIDE
     Indication: DEPRESSION
     Dosage: 1 PER DAY
     Route: 065
  17. VENLAFAXINE [Suspect]
     Active Substance: VENLAFAXINE HYDROCHLORIDE
     Dosage: 1 PER DAY
     Route: 065
  18. SANDO K [POTASSIUM BICARBONATE;POTASSIUM CHLORIDE] [Concomitant]
     Active Substance: POTASSIUM BICARBONATE\POTASSIUM CHLORIDE
     Dosage: UNK (STARTED ON 28 AUG 2020)
     Route: 065
  19. PHOSPHATE [PHOSPHORIC ACID SODIUM] [Concomitant]
     Active Substance: SODIUM PHOSPHATE
     Indication: PRODUCT USED FOR UNKNOWN INDICATION
     Dosage: UNK PER DAY (STARTED ON 25 AUG 2020)
     Route: 065
  20. CYCLIZINE [Suspect]
     Active Substance: CYCLIZINE
     Dosage: UNK
     Route: 065
  21. ETOPOSIDE. [Suspect]
     Active Substance: ETOPOSIDE
     Dosage: 148 MILLIGRAM PER DAY
     Route: 065
  22. FLUCONAZOLE. [Suspect]
     Active Substance: FLUCONAZOLE
     Indication: CANDIDA INFECTION
     Dosage: UNK, PER DAY
     Route: 065
  23. LANSOPRAZOLE. [Suspect]
     Active Substance: LANSOPRAZOLE
     Indication: PROPHYLAXIS
     Dosage: UNK PER DAY (STARTED ON 01 JAN 2020)
     Route: 065
  24. SOLPADOL [CODEINE PHOSPHATE;PARACETAMOL] [Suspect]
     Active Substance: ACETAMINOPHEN\CODEINE PHOSPHATE
     Indication: HEADACHE
     Dosage: 2 BID
     Route: 065
  25. ATEZOLIZUMAB. [Suspect]
     Active Substance: ATEZOLIZUMAB
     Dosage: 1200 MILLIGRAM (19 UG 2020)
     Route: 042
  26. CYCLIZINE [Suspect]
     Active Substance: CYCLIZINE
     Dosage: 1 UNK, EVERY 6 HRS
     Route: 065
  27. MORPHINE SULPHATE [Suspect]
     Active Substance: MORPHINE SULFATE
     Dosage: UNK (ORAMORPH) PER DAY (STARTED ON 27 JUL 2020)
     Route: 065
  28. LACTULOSE. [Suspect]
     Active Substance: LACTULOSE
     Indication: PROPHYLAXIS
     Dosage: 2, BID
     Route: 065
  29. VORICONAZOLE. [Suspect]
     Active Substance: VORICONAZOLE
     Indication: NEUTROPENIC SEPSIS
     Dosage: UNK, PER DAY  (STARTED ON 30 AUG 2020)
     Route: 065
  30. ZOPICLONE [Suspect]
     Active Substance: ZOPICLONE
     Indication: PROPHYLAXIS
     Dosage: UNK, PER DAY (STARTED ON 31 JUL 2020)
     Route: 065
  31. AMOXICILLIN. [Suspect]
     Active Substance: AMOXICILLIN
     Indication: PRODUCT USED FOR UNKNOWN INDICATION
     Dosage: 1, PER DAY (STARTED  FROM 10 AUG 2020)
     Route: 065
  32. ATEZOLIZUMAB. [Suspect]
     Active Substance: ATEZOLIZUMAB
     Indication: SMALL CELL LUNG CANCER
     Dosage: UNK
     Route: 065
  33. MAGNESIUM [Concomitant]
     Active Substance: MAGNESIUM
     Indication: PRODUCT USED FOR UNKNOWN INDICATION
     Dosage: UNK (STARTED ON 19 AUG 2020)
     Route: 065
  34. ATEZOLIZUMAB. [Suspect]
     Active Substance: ATEZOLIZUMAB
     Indication: TRANSITIONAL CELL CARCINOMA
     Dosage: UNK
     Route: 065
  35. SANDO K [POTASSIUM BICARBONATE;POTASSIUM CHLORIDE] [Concomitant]
     Active Substance: POTASSIUM BICARBONATE\POTASSIUM CHLORIDE
     Indication: PROPHYLAXIS
     Dosage: UNK, BID (STARTED ON 19 AUG 2020)
     Route: 065
  36. CIPROFLOXACIN. [Suspect]
     Active Substance: CIPROFLOXACIN
     Indication: PROPHYLAXIS
     Dosage: 1, BID (STARTED ON 27 AUG 2020)
     Route: 065
  37. DIFFLAM [BENZYDAMINE HYDROCHLORIDE] [Suspect]
     Active Substance: BENZYDAMINE HYDROCHLORIDE
     Indication: PROPHYLAXIS
     Dosage: UNK (STARTED ON 19 AUG 2020)
     Route: 065
  38. MORPHINE SULPHATE [Suspect]
     Active Substance: MORPHINE SULFATE
     Indication: PROPHYLAXIS
     Dosage: UNK (27 JUL 2020)
     Route: 065
  39. VENLAFAXINE [Suspect]
     Active Substance: VENLAFAXINE HYDROCHLORIDE
     Dosage: 1, BID (STARTED ON 20 AUG 2020)
     Route: 065
  40. SPIRIVA [Suspect]
     Active Substance: TIOTROPIUM BROMIDE MONOHYDRATE
     Indication: CHRONIC OBSTRUCTIVE PULMONARY DISEASE
     Dosage: 1 PER DAY
     Route: 065

REACTIONS (27)
  - Skin candida [Fatal]
  - Dysphagia [Fatal]
  - Hypomagnesaemia [Fatal]
  - Nervous system disorder [Fatal]
  - Hypokalaemia [Fatal]
  - Neutrophil count decreased [Fatal]
  - Productive cough [Fatal]
  - Depression [Fatal]
  - Asthenia [Fatal]
  - Off label use [Unknown]
  - Dehydration [Fatal]
  - Hypomagnesaemia [Fatal]
  - Headache [Fatal]
  - Vomiting [Fatal]
  - Nausea [Fatal]
  - Decreased appetite [Fatal]
  - Mucosal inflammation [Fatal]
  - Mouth ulceration [Fatal]
  - Anaemia [Fatal]
  - Gait disturbance [Fatal]
  - Constipation [Fatal]
  - Anaemia [Fatal]
  - Diarrhoea [Fatal]
  - Dyspnoea [Fatal]
  - Drug ineffective [Fatal]
  - Neutropenic sepsis [Fatal]
  - Death [Fatal]

NARRATIVE: CASE EVENT DATE: 20200730
